FAERS Safety Report 18678174 (Version 1)
Quarter: 2020Q4

REPORT INFORMATION
  Report Type: Report from Study
  Country: None (occurrence: NL)
  Receive Date: 20201230
  Receipt Date: 20201230
  Transmission Date: 20210114
  Serious: Yes (Hospitalization)
  Sender: FDA-Public Use
  Company Number: NL-ABBVIE-18K-114-2268267-00

PATIENT
  Age: 79 Year
  Sex: Male
  Weight: 73 kg

DRUGS (6)
  1. DUODOPA [Suspect]
     Active Substance: CARBIDOPA\LEVODOPA
     Dosage: MD 7.1 CD 6.2 ED 4.0
     Route: 050
  2. DUODOPA [Suspect]
     Active Substance: CARBIDOPA\LEVODOPA
     Indication: PARKINSON^S DISEASE
     Dosage: OD:17 CD:5,1 ED:4
     Route: 050
     Dates: start: 20150908
  3. DUODOPA [Suspect]
     Active Substance: CARBIDOPA\LEVODOPA
     Dosage: MD:17 CD:5.7 ED:4.0
     Route: 050
  4. LEVODOPA/CARBIDOPA [Concomitant]
     Active Substance: CARBIDOPA\LEVODOPA
     Indication: PRODUCT USED FOR UNKNOWN INDICATION
  5. DUODOPA [Suspect]
     Active Substance: CARBIDOPA\LEVODOPA
     Dosage: MD: 7.1ML, CD: 6.2ML/H, ED: 4.0ML
     Route: 050
  6. DUODOPA [Suspect]
     Active Substance: CARBIDOPA\LEVODOPA
     Dosage: MD : 17 CD: 6.3 ED:4
     Route: 050

REACTIONS (44)
  - Abnormal dreams [Not Recovered/Not Resolved]
  - Fibroma [Not Recovered/Not Resolved]
  - General physical health deterioration [Not Recovered/Not Resolved]
  - Nocturia [Recovered/Resolved]
  - Weight decreased [Not Recovered/Not Resolved]
  - Stoma site erythema [Unknown]
  - Wheelchair user [Not Recovered/Not Resolved]
  - Speech disorder [Not Recovered/Not Resolved]
  - Device use issue [Not Recovered/Not Resolved]
  - Gait inability [Not Recovered/Not Resolved]
  - Anger [Not Recovered/Not Resolved]
  - Abnormal faeces [Recovered/Resolved]
  - Delusional disorder, unspecified type [Not Recovered/Not Resolved]
  - Fall [Not Recovered/Not Resolved]
  - Depressed mood [Not Recovered/Not Resolved]
  - Dysphagia [Not Recovered/Not Resolved]
  - Fatigue [Not Recovered/Not Resolved]
  - Abnormal behaviour [Not Recovered/Not Resolved]
  - Dementia [Not Recovered/Not Resolved]
  - Restlessness [Not Recovered/Not Resolved]
  - Gait disturbance [Not Recovered/Not Resolved]
  - Stoma site discharge [Recovered/Resolved]
  - Bradykinesia [Not Recovered/Not Resolved]
  - Mood altered [Not Recovered/Not Resolved]
  - Stoma site inflammation [Not Recovered/Not Resolved]
  - Fluid intake reduced [Not Recovered/Not Resolved]
  - Anal incontinence [Not Recovered/Not Resolved]
  - Impaired quality of life [Unknown]
  - Hallucination [Recovered/Resolved]
  - Feeding disorder [Not Recovered/Not Resolved]
  - Restlessness [Not Recovered/Not Resolved]
  - Device issue [Unknown]
  - Decreased appetite [Not Recovered/Not Resolved]
  - Therapeutic product effect variable [Not Recovered/Not Resolved]
  - Therapeutic product effect incomplete [Not Recovered/Not Resolved]
  - Dyskinesia [Not Recovered/Not Resolved]
  - Suspiciousness [Not Recovered/Not Resolved]
  - Somnolence [Not Recovered/Not Resolved]
  - Urosepsis [Recovered/Resolved]
  - Muscle rigidity [Not Recovered/Not Resolved]
  - Stubbornness [Not Recovered/Not Resolved]
  - Memory impairment [Not Recovered/Not Resolved]
  - Anxiety [Not Recovered/Not Resolved]
  - On and off phenomenon [Not Recovered/Not Resolved]

NARRATIVE: CASE EVENT DATE: 2020
